FAERS Safety Report 6647893-5 (Version None)
Quarter: 2010Q1

REPORT INFORMATION
  Report Type: 
  Country: None (occurrence: None)
  Receive Date: 20100318
  Receipt Date: 20100308
  Transmission Date: 20100710
  Serious: Yes (Other)
  Sender: FDA-Public Use
  Company Number: TPH-00231

PATIENT
  Age: 18 Year
  Sex: Female

DRUGS (1)
  1. TRIONETTA [Suspect]
     Indication: CONTRACEPTION
     Dosage: ORAL
     Route: 048
     Dates: start: 20070806

REACTIONS (2)
  - INJURY [None]
  - PELVIC VENOUS THROMBOSIS [None]
